FAERS Safety Report 4548618-X (Version None)
Quarter: 2005Q1

REPORT INFORMATION
  Report Type: 
  Country: None (occurrence: None)
  Receive Date: 20050107
  Receipt Date: 20050107
  Transmission Date: 20050727
  Serious: Yes (Hospitalization)
  Sender: FDA-Public Use
  Company Number: None

PATIENT
  Age: 76 Year
  Sex: Male
  Weight: 88.905 kg

DRUGS (1)
  1. GEMCITABINE [Suspect]
     Indication: PANCREATIC CARCINOMA
     Dosage: 1500 MG/M2 IV OVER 150 MIN Q WK X 3 WKS FOLLOWED BY 1 WEEK REST
     Route: 042

REACTIONS (12)
  - AORTIC VALVE INCOMPETENCE [None]
  - BLOOD SODIUM DECREASED [None]
  - CARDIAC FAILURE CONGESTIVE [None]
  - CARDIOMEGALY [None]
  - EJECTION FRACTION DECREASED [None]
  - FIBROSIS [None]
  - HAEMOGLOBIN DECREASED [None]
  - HYPOKINESIA [None]
  - PNEUMONIA [None]
  - RALES [None]
  - SPUTUM ABNORMAL [None]
  - THROMBOSIS [None]
